FAERS Safety Report 9362738 (Version 2)
Quarter: 2013Q3

REPORT INFORMATION
  Report Type: Spontaneous
  Country: SE (occurrence: SE)
  Receive Date: 20130622
  Receipt Date: 20130723
  Transmission Date: 20140515
  Serious: Yes (Hospitalization)
  Sender: FDA-Public Use
  Company Number: SE-ASTRAZENECA-2013SE47583

PATIENT
  Age: 699 Month
  Sex: Female

DRUGS (7)
  1. BRILIQUE [Suspect]
     Route: 048
  2. TROMBYL [Suspect]
     Route: 065
  3. CIPRAMIL [Suspect]
     Indication: DEPRESSION
     Route: 065
     Dates: start: 201305, end: 201305
  4. PAMOL [Concomitant]
  5. LEVAXIN [Concomitant]
     Indication: HYPOTHYROIDISM
  6. TAMOXIFEN [Concomitant]
  7. FRAGMIN [Concomitant]

REACTIONS (3)
  - Erosive duodenitis [Unknown]
  - Haemorrhagic erosive gastritis [Unknown]
  - Diarrhoea [Unknown]
